FAERS Safety Report 6725287-1 (Version None)
Quarter: 2010Q2

REPORT INFORMATION
  Report Type: 
  Country: None (occurrence: None)
  Receive Date: 20100513
  Receipt Date: 20100513
  Transmission Date: 20101027
  Serious: Yes (Other)
  Sender: FDA-Public Use
  Company Number: None

PATIENT
  Sex: Female
  Weight: 72.5755 kg

DRUGS (1)
  1. NEXIUM [Suspect]
     Indication: GASTROOESOPHAGEAL REFLUX DISEASE
     Dosage: 40MG DAILY ORAL
     Route: 048
     Dates: start: 20060801, end: 20100301

REACTIONS (22)
  - ABASIA [None]
  - ABDOMINAL DISTENSION [None]
  - ARTHRITIS [None]
  - BACK PAIN [None]
  - BURNING SENSATION [None]
  - CALCIUM METABOLISM DISORDER [None]
  - DRY MOUTH [None]
  - DYSPHONIA [None]
  - FLATULENCE [None]
  - HAIR GROWTH ABNORMAL [None]
  - HORMONE LEVEL ABNORMAL [None]
  - HOT FLUSH [None]
  - IMMUNE SYSTEM DISORDER [None]
  - INSOMNIA [None]
  - MOUTH ULCERATION [None]
  - MUSCULAR WEAKNESS [None]
  - NAIL DISORDER [None]
  - NERVOUS SYSTEM DISORDER [None]
  - PRURITUS [None]
  - TACHYCARDIA [None]
  - TOOTHACHE [None]
  - WEIGHT INCREASED [None]
